FAERS Safety Report 11700045 (Version 1)
Quarter: 2015Q4

REPORT INFORMATION
  Report Type: Spontaneous
  Country: US (occurrence: US)
  Receive Date: 20151105
  Receipt Date: 20151105
  Transmission Date: 20160304
  Serious: Yes (Hospitalization)
  Sender: FDA-Public Use
  Company Number: US-LUPIN PHARMACEUTICALS INC.-E2B_00004420

PATIENT
  Age: 66 Year
  Sex: Male
  Weight: 105.33 kg

DRUGS (3)
  1. LISINOPRIL TABLETS USP 20MG [Suspect]
     Active Substance: LISINOPRIL
     Indication: HYPERTENSION
     Route: 048
     Dates: end: 201504
  2. ATORVASTATIN [Concomitant]
     Active Substance: ATORVASTATIN
     Indication: BLOOD CHOLESTEROL INCREASED
     Route: 065
  3. PREVACID [Concomitant]
     Active Substance: LANSOPRAZOLE
     Indication: GASTRIC DISORDER
     Route: 065

REACTIONS (7)
  - Loss of consciousness [Not Recovered/Not Resolved]
  - Renal disorder [Unknown]
  - Feeling abnormal [Unknown]
  - Chromaturia [Recovered/Resolved]
  - Decreased appetite [Not Recovered/Not Resolved]
  - Fatigue [Not Recovered/Not Resolved]
  - Urine odour abnormal [Recovered/Resolved]

NARRATIVE: CASE EVENT DATE: 201504
